FAERS Safety Report 6637932-X (Version None)
Quarter: 2010Q1

REPORT INFORMATION
  Report Type: 
  Country: None (occurrence: None)
  Receive Date: 20100317
  Receipt Date: 20100310
  Transmission Date: 20100710
  Serious: Yes (Life-Threatening)
  Sender: FDA-Public Use
  Company Number: PHEH2010US02876

PATIENT
  Sex: Female

DRUGS (1)
  1. FORADIL [Suspect]
     Dosage: 12 UG, BID
     Dates: start: 20090101

REACTIONS (2)
  - DEVICE MALFUNCTION [None]
  - LUNG NEOPLASM MALIGNANT [None]
